FAERS Safety Report 20808210 (Version 1)
Quarter: 2022Q2

REPORT INFORMATION
  Report Type: Spontaneous
  Country: US (occurrence: US)
  Receive Date: 20220510
  Receipt Date: 20220510
  Transmission Date: 20220721
  Serious: Yes (Death, Hospitalization, Other)
  Sender: FDA-Public Use
  Company Number: US-SA-2022SA157944

PATIENT
  Age: 65 Year
  Sex: Male

DRUGS (3)
  1. CLOPIDOGREL BISULFATE [Suspect]
     Active Substance: CLOPIDOGREL BISULFATE
     Indication: Antiplatelet therapy
     Dosage: 75 MG, QD
  2. CLOPIDOGREL BISULFATE [Suspect]
     Active Substance: CLOPIDOGREL BISULFATE
     Dosage: 75 MG, QD (REINSTITUTED ON POSTOPERATIVE DAY TWO)
  3. ASPIRIN [Concomitant]
     Active Substance: ASPIRIN
     Indication: Antiplatelet therapy
     Dosage: UNK (INITIATED ON POSTOPERATIVE DAY ONE)

REACTIONS (5)
  - Cardio-respiratory arrest [Fatal]
  - Acute myocardial infarction [Fatal]
  - Vascular stent thrombosis [Fatal]
  - Chest pain [Fatal]
  - Ventricular hypokinesia [Fatal]
